FAERS Safety Report 6782957-7 (Version None)
Quarter: 2010Q2

REPORT INFORMATION
  Report Type: 
  Country: None (occurrence: None)
  Receive Date: 20100622
  Receipt Date: 20100610
  Transmission Date: 20101027
  Serious: No
  Sender: FDA-Public Use
  Company Number: US-JNJFOC-20100604119

PATIENT
  Sex: Female
  Weight: 68.04 kg

DRUGS (3)
  1. DURAGESIC-100 [Suspect]
     Indication: PAIN
     Route: 062
  2. DURAGESIC-100 [Suspect]
     Route: 062
  3. DURAGESIC-100 [Suspect]
     Route: 062

REACTIONS (10)
  - HEADACHE [None]
  - INFLUENZA LIKE ILLNESS [None]
  - INTENTIONAL DRUG MISUSE [None]
  - MUSCLE TWITCHING [None]
  - PAIN [None]
  - SOMNOLENCE [None]
  - TREATMENT NONCOMPLIANCE [None]
  - TREMOR [None]
  - VOMITING [None]
  - WITHDRAWAL SYNDROME [None]
